FAERS Safety Report 16274131 (Version 2)
Quarter: 2019Q2

REPORT INFORMATION
  Report Type: Spontaneous
  Country: US (occurrence: US)
  Receive Date: 20190506
  Receipt Date: 20190614
  Transmission Date: 20190711
  Serious: Yes (Death, Hospitalization, Other)
  Sender: FDA-Public Use
  Company Number: US-ROCHE-2312891

PATIENT
  Age: 63 Year
  Sex: Female

DRUGS (15)
  1. ZOFRAN [Concomitant]
     Active Substance: ONDANSETRON HYDROCHLORIDE
     Route: 048
     Dates: start: 20190128
  2. NORCO [Concomitant]
     Active Substance: ACETAMINOPHEN\HYDROCODONE BITARTRATE
     Route: 048
     Dates: start: 20190227
  3. METRONIDAZOLE. [Concomitant]
     Active Substance: METRONIDAZOLE
     Dosage: 1 TABLET(S) 3 TIMES DAILY , FOR 10 DAY
     Route: 048
  4. PROMACTA [Concomitant]
     Active Substance: ELTROMBOPAG OLAMINE
     Dosage: 30 TABLET(S) FOR 30 DAY
     Route: 048
     Dates: start: 20190116
  5. IRINOTECAN [Concomitant]
     Active Substance: IRINOTECAN
  6. FLUOROURACIL. [Concomitant]
     Active Substance: FLUOROURACIL
  7. AVASTIN [Suspect]
     Active Substance: BEVACIZUMAB
     Route: 042
     Dates: start: 20170228
  8. DOCUSATE SODIUM. [Concomitant]
     Active Substance: DOCUSATE SODIUM
     Dosage: DAILY 2 CAP
     Route: 048
  9. OXALIPLATIN. [Concomitant]
     Active Substance: OXALIPLATIN
     Route: 042
     Dates: start: 20190102
  10. AVASTIN [Suspect]
     Active Substance: BEVACIZUMAB
     Indication: RECTAL CANCER
     Dosage: STRENGTH: 25MG/ML
     Route: 042
     Dates: start: 20190212
  11. LEUCOVORIN CALCIUM. [Concomitant]
     Active Substance: LEUCOVORIN CALCIUM
     Route: 065
     Dates: start: 20190102
  12. ACYCLOVIR [ACICLOVIR] [Concomitant]
     Active Substance: ACYCLOVIR
     Route: 048
  13. NITROFURANTOIN MACROCRYSTALS [Concomitant]
     Active Substance: NITROFURANTOIN
     Route: 048
  14. FOLIC ACID. [Concomitant]
     Active Substance: FOLIC ACID
  15. PYRIDIUM [Concomitant]
     Active Substance: PHENAZOPYRIDINE
     Dosage: 30 TABLET(S) FOR 30 DAY
     Route: 048
     Dates: start: 20190116

REACTIONS (14)
  - Malaise [Unknown]
  - Constipation [Unknown]
  - Vaginal lesion [Unknown]
  - Asthenia [Unknown]
  - Pneumonia [Unknown]
  - Pyrexia [Unknown]
  - Nausea [Unknown]
  - Death [Fatal]
  - Taste disorder [Unknown]
  - Dizziness [Unknown]
  - Anxiety [Unknown]
  - Thrombocytopenia [Unknown]
  - Dehydration [Unknown]
  - Ear pain [Unknown]

NARRATIVE: CASE EVENT DATE: 20190426
